FAERS Safety Report 9015619 (Version 1)
Quarter: 2013Q1

REPORT INFORMATION
  Report Type: Spontaneous
  Country: FI (occurrence: None)
  Receive Date: 20130102
  Receipt Date: 20130102
  Transmission Date: 20140127
  Serious: Yes (Other)
  Sender: FDA-Public Use
  Company Number: DSA_61630_2012

PATIENT
  Age: 38 Year
  Sex: Female

DRUGS (6)
  1. VOXRA [Suspect]
     Route: 048
     Dates: start: 20121130, end: 20121212
  2. QUETIAPINE FUMARATE [Concomitant]
  3. SEROQUEL [Concomitant]
  4. MIRENA [Concomitant]
  5. PULMICORT [Concomitant]
  6. NASOFAN [Concomitant]

REACTIONS (5)
  - Erythema multiforme [None]
  - Cheilitis [None]
  - Rash [None]
  - Pruritus [None]
  - Skin disorder [None]
